FAERS Safety Report 23899197 (Version 1)
Quarter: 2024Q2

REPORT INFORMATION
  Report Type: Spontaneous
  Country: US (occurrence: US)
  Receive Date: 20240526
  Receipt Date: 20240526
  Transmission Date: 20240715
  Serious: Yes (Hospitalization)
  Sender: FDA-Public Use
  Company Number: US-DRL-USA-LIT/USA/24/0007506

PATIENT

DRUGS (1)
  1. DAPTOMYCIN [Suspect]
     Active Substance: DAPTOMYCIN
     Indication: Bacterial infection

REACTIONS (5)
  - Vomiting [Unknown]
  - Irritability [Unknown]
  - Blood creatinine increased [Unknown]
  - Product use issue [Unknown]
  - Product use in unapproved indication [Unknown]
